FAERS Safety Report 6980298-6 (Version None)
Quarter: 2010Q3

REPORT INFORMATION
  Report Type: 
  Country: None (occurrence: None)
  Receive Date: 20100908
  Receipt Date: 20100831
  Transmission Date: 20110219
  Serious: No
  Sender: FDA-Public Use
  Company Number: 2010SP040376

PATIENT
  Age: 67 Year
  Sex: Male

DRUGS (3)
  1. REBETOL [Suspect]
     Indication: PRODUCT USED FOR UNKNOWN INDICATION
     Dosage: 800 MG; QD; PO, 400 MG; QD; PO
     Route: 048
     Dates: start: 20100706, end: 20100717
  2. REBETOL [Suspect]
     Indication: PRODUCT USED FOR UNKNOWN INDICATION
     Dosage: 800 MG; QD; PO, 400 MG; QD; PO
     Route: 048
     Dates: start: 20100718
  3. INTERFERON [Suspect]
     Indication: PRODUCT USED FOR UNKNOWN INDICATION
     Dosage: 6 MIU; TIW; INDRP
     Route: 041
     Dates: start: 20100706

REACTIONS (1)
  - RENAL IMPAIRMENT [None]
